FAERS Safety Report 4482660-2 (Version None)
Quarter: 2004Q3

REPORT INFORMATION
  Report Type: 
  Country: None (occurrence: None)
  Receive Date: 20040921
  Receipt Date: 20040618
  Transmission Date: 20050211
  Serious: Yes (Death)
  Sender: FDA-Public Use
  Company Number: 163-20785-04060377

PATIENT
  Age: 62 Year
  Sex: Male

DRUGS (1)
  1. THALOMID [Suspect]
     Indication: MULTIPLE MYELOMA
     Dosage: 50-200MG, QD, ORAL
     Route: 048
     Dates: start: 20030717, end: 20040327

REACTIONS (5)
  - DEATH [None]
  - DISEASE PROGRESSION [None]
  - RASH [None]
  - RENAL FAILURE [None]
  - UNEXPECTED THERAPEUTIC DRUG EFFECT [None]
